FAERS Safety Report 6883831-8 (Version None)
Quarter: 2010Q3

REPORT INFORMATION
  Report Type: 
  Country: None (occurrence: None)
  Receive Date: 20100729
  Receipt Date: 20100720
  Transmission Date: 20110219
  Serious: Yes (Hospitalization)
  Sender: FDA-Public Use
  Company Number: IT-BAXTER-2010BH017547

PATIENT
  Age: 20 Year
  Sex: Male

DRUGS (6)
  1. ENDOXAN BAXTER [Suspect]
     Indication: LUPUS NEPHRITIS
     Route: 048
     Dates: start: 20100516, end: 20100616
  2. DELTACORTENE [Concomitant]
     Indication: PRODUCT USED FOR UNKNOWN INDICATION
     Route: 048
  3. RAMIPRIL [Concomitant]
     Indication: PRODUCT USED FOR UNKNOWN INDICATION
     Route: 048
  4. AMLODIPINE [Concomitant]
     Indication: PRODUCT USED FOR UNKNOWN INDICATION
     Route: 048
  5. LASIX [Concomitant]
     Indication: PRODUCT USED FOR UNKNOWN INDICATION
     Route: 048
  6. TENORMIN [Concomitant]
     Indication: PRODUCT USED FOR UNKNOWN INDICATION
     Route: 065

REACTIONS (3)
  - HYPOGAMMAGLOBULINAEMIA [None]
  - LYMPHOPENIA [None]
  - TRANSAMINASES INCREASED [None]
